FAERS Safety Report 7620786-2 (Version None)
Quarter: 2011Q3

REPORT INFORMATION
  Report Type: 
  Country: None (occurrence: None)
  Receive Date: 20110719
  Receipt Date: 20110708
  Transmission Date: 20111222
  Serious: Yes (Other)
  Sender: FDA-Public Use
  Company Number: PHHY2011US63674

PATIENT
  Age: 22 Year
  Sex: Female

DRUGS (9)
  1. REMIFENTANIL [Suspect]
     Dosage: 0.10 UG/KG/MIN
  2. REMIFENTANIL [Suspect]
     Dosage: 0.2 UG/KG/MIN
  3. PHENYLEPHRINE HCL [Suspect]
     Dosage: 50 UG/MIN
  4. NITROGLYCERIN [Suspect]
     Dosage: 100 UG/MIN
  5. FENTANYL-100 [Suspect]
     Dosage: 15 MG, UNK
  6. MORPHINE [Suspect]
     Dosage: 150 MG, UNK
     Route: 037
  7. BUPIVACAINE HCL [Suspect]
     Dosage: 12 MG, UNK
  8. LIDOCAINE [Concomitant]
  9. EPINEPHRINE [Concomitant]

REACTIONS (5)
  - MATERNAL EXPOSURE DURING PREGNANCY [None]
  - ANXIETY [None]
  - UTERINE HYPOTONUS [None]
  - SEDATION [None]
  - RESPIRATORY DEPRESSION [None]
